FAERS Safety Report 23165557 (Version 1)
Quarter: 2023Q4

REPORT INFORMATION
  Report Type: Spontaneous
  Country: US (occurrence: US)
  Receive Date: 20231109
  Receipt Date: 20231109
  Transmission Date: 20240110
  Serious: No
  Sender: FDA-Public Use
  Company Number: US-ANIPHARMA-2023-US-018830

PATIENT
  Age: 50 Year
  Sex: Female

DRUGS (1)
  1. CORTICOTROPIN [Suspect]
     Active Substance: CORTICOTROPIN
     Indication: Sarcoidosis
     Dosage: INJECT 80 UNITS (1ML) SUBCUTANEOUSLY EVERY 72 HOURS AS DIRECTED.
     Route: 058
     Dates: start: 202301

REACTIONS (3)
  - Contraindicated product administered [Not Recovered/Not Resolved]
  - Hot flush [Unknown]
  - Drug ineffective [Unknown]
